FAERS Safety Report 24765327 (Version 1)
Quarter: 2024Q4

REPORT INFORMATION
  Report Type: Spontaneous
  Country: US (occurrence: None)
  Receive Date: 20241219
  Receipt Date: 20241219
  Transmission Date: 20250115
  Serious: No
  Sender: Public
  Company Number: None

PATIENT
  Age: 76 Year
  Sex: Male
  Weight: 113 kg

DRUGS (1)
  1. SEMAGLUTIDE [Suspect]
     Active Substance: SEMAGLUTIDE
     Indication: Diabetes mellitus
     Dates: end: 20240807

REACTIONS (6)
  - Syncope [None]
  - Tachycardia [None]
  - Vomiting [None]
  - Dizziness [None]
  - Blood creatinine increased [None]
  - Heart rate increased [None]

NARRATIVE: CASE EVENT DATE: 20240805
